FAERS Safety Report 9115747 (Version 1)
Quarter: 2013Q1

REPORT INFORMATION
  Report Type: Spontaneous
  Country: US (occurrence: None)
  Receive Date: 20130221
  Receipt Date: 20130221
  Transmission Date: 20140127
  Serious: Yes (Other)
  Sender: FDA-Public Use
  Company Number: None

PATIENT
  Age: 58 Year
  Sex: Male
  Weight: 88.45 kg

DRUGS (1)
  1. TRAMADOL [Suspect]
     Dosage: 50 MG 1 OR 2/6-8HRS MOUTH
     Route: 048
     Dates: start: 20130129

REACTIONS (2)
  - Micturition urgency [None]
  - Dysuria [None]
